FAERS Safety Report 15254523 (Version 4)
Quarter: 2023Q4

REPORT INFORMATION
  Report Type: Spontaneous
  Country: PT (occurrence: PT)
  Receive Date: 20180808
  Receipt Date: 20231026
  Transmission Date: 20240110
  Serious: Yes (Other)
  Sender: FDA-Public Use
  Company Number: PT-AUROBINDO-AUR-APL-2018-040400

PATIENT
  Age: 1 Month
  Sex: Female
  Weight: 2.4 kg

DRUGS (22)
  1. PANTOPRAZOLE [Suspect]
     Active Substance: PANTOPRAZOLE
     Indication: Foetal exposure during pregnancy
     Dosage: 20 MILLIGRAM, DAILY (MOTHER DOSE)
     Route: 064
  2. PANTOPRAZOLE [Suspect]
     Active Substance: PANTOPRAZOLE
     Dosage: UNK UNK, 1X/DAY
     Route: 064
  3. NIFEDIPINE [Suspect]
     Active Substance: NIFEDIPINE
     Indication: Hypertension
     Dosage: UNK
     Route: 064
  4. NIFEDIPINE [Suspect]
     Active Substance: NIFEDIPINE
     Indication: Foetal exposure during pregnancy
  5. PREDNISOLONE [Suspect]
     Active Substance: PREDNISOLONE
     Indication: Foetal exposure during pregnancy
     Dosage: 80 MILLIGRAM, DAILY (MOTHER DOSE)
     Route: 064
  6. PREDNISOLONE [Suspect]
     Active Substance: PREDNISOLONE
     Dosage: 120 MILLIGRAM, DAILY (MOTHER DOSE)
     Route: 064
  7. PREDNISOLONE [Suspect]
     Active Substance: PREDNISOLONE
     Dosage: 40 MILLIGRAM, DAILY (MOTHER DOSE)
     Route: 064
  8. PREDNISOLONE [Suspect]
     Active Substance: PREDNISOLONE
     Dosage: 160 MILLIGRAM, DAILY (MOTHER DOSE)
     Route: 064
  9. PREDNISOLONE [Suspect]
     Active Substance: PREDNISOLONE
     Dosage: 1 UNK, QD
     Route: 064
  10. AZATHIOPRINE [Suspect]
     Active Substance: AZATHIOPRINE
     Indication: Thrombocytopenic purpura
     Dosage: 150 MILLIGRAM, DAILY (MOTHER DOSE)
     Route: 064
     Dates: start: 20170712, end: 20170731
  11. AZATHIOPRINE [Suspect]
     Active Substance: AZATHIOPRINE
     Indication: Foetal exposure during pregnancy
     Dosage: 1 UNK, QD
     Route: 064
  12. DEXAMETHASONE [Suspect]
     Active Substance: DEXAMETHASONE
     Indication: Foetal exposure during pregnancy
     Dosage: 24 MILLIGRAM, DAILY (MOTHER DOSE 6 MG, QID)
     Route: 064
  13. DEXAMETHASONE [Suspect]
     Active Substance: DEXAMETHASONE
     Dosage: UNK UNK, 4X/DAY
     Route: 064
  14. DEXAMETHASONE [Suspect]
     Active Substance: DEXAMETHASONE
     Dosage: 4 UNK, ONCE A DAY
     Route: 064
  15. DEXAMETHASONE [Suspect]
     Active Substance: DEXAMETHASONE
     Dosage: 6 MILLIGRAM, ONCE A DAY (MOTHER DOSE 6 MG)
     Route: 064
  16. ELTROMBOPAG [Suspect]
     Active Substance: ELTROMBOPAG
     Indication: Thrombocytopenic purpura
     Dosage: 12.5 MG, 1X/DAY
     Route: 064
     Dates: start: 20170804, end: 20170814
  17. ELTROMBOPAG [Suspect]
     Active Substance: ELTROMBOPAG
     Indication: Foetal exposure during pregnancy
     Dosage: 25 MG, 1X/DAY
     Route: 064
     Dates: start: 20170731, end: 2017
  18. ELTROMBOPAG [Suspect]
     Active Substance: ELTROMBOPAG
     Dosage: 50 MG, 1X/DAY
     Route: 064
     Dates: start: 20170718, end: 201707
  19. ENOXAPARIN [Suspect]
     Active Substance: ENOXAPARIN
     Indication: Thrombosis prophylaxis
     Dosage: 120 MILLIGRAM, DAILY, (1 MG/KG/DAY)
     Route: 064
  20. ENOXAPARIN [Suspect]
     Active Substance: ENOXAPARIN
     Indication: Foetal exposure during pregnancy
     Dosage: 1 UNK, QD
     Route: 064
  21. METHYLPREDNISOLONE [Suspect]
     Active Substance: METHYLPREDNISOLONE
     Indication: Foetal exposure during pregnancy
     Dosage: 90 MILLIGRAM, DAILY (MOTHER DOSE)
     Route: 064
  22. METHYLPREDNISOLONE [Suspect]
     Active Substance: METHYLPREDNISOLONE
     Dosage: 1 UNK, QD (1)
     Route: 064

REACTIONS (3)
  - Foetal exposure during delivery [Unknown]
  - Premature baby [Unknown]
  - Jaundice neonatal [Unknown]
